FAERS Safety Report 8116997-2 (Version None)
Quarter: 2012Q1

REPORT INFORMATION
  Report Type: 
  Country: None (occurrence: None)
  Receive Date: 20120131
  Receipt Date: 20120121
  Transmission Date: 20120608
  Serious: Yes (Life-Threatening, Hospitalization, Other)
  Sender: FDA-Public Use
  Company Number: AUR-APL-2012-00667

PATIENT

DRUGS (2)
  1. VIREAD [Suspect]
     Indication: HIV INFECTION
  2. METFORMIN HCL [Suspect]
     Indication: TYPE 2 DIABETES MELLITUS

REACTIONS (3)
  - GASTROINTESTINAL DISORDER [None]
  - LACTIC ACIDOSIS [None]
  - RENAL IMPAIRMENT [None]
